FAERS Safety Report 5070936-X (Version None)
Quarter: 2006Q3

REPORT INFORMATION
  Report Type: 
  Country: None (occurrence: None)
  Receive Date: 20060804
  Receipt Date: 20060728
  Transmission Date: 20061208
  Serious: Yes (Hospitalization)
  Sender: FDA-Public Use
  Company Number: PHRM2006FR02227

PATIENT
  Age: 78 Year
  Sex: Female

DRUGS (8)
  1. SPIRONOLACTONE [Suspect]
     Route: 048
     Dates: end: 20060409
  2. LESCOL [Concomitant]
     Dosage: UNK, UNK
     Route: 048
  3. LEVOTHYROXINE SODIUM [Concomitant]
     Route: 048
  4. KALEORID [Suspect]
     Route: 048
     Dates: end: 20060409
  5. TAREG [Suspect]
     Route: 048
     Dates: end: 20060409
  6. COUMADIN [Concomitant]
  7. TRIATEC [Suspect]
     Dosage: UNK, UNK
     Route: 048
     Dates: end: 20060409
  8. HYPERIUM [Concomitant]
     Dosage: UNK, UNK
     Route: 048
     Dates: end: 20060409

REACTIONS (2)
  - DRUG INTERACTION [None]
  - HYPERKALAEMIA [None]
